FAERS Safety Report 15916133 (Version 1)
Quarter: 2019Q1

REPORT INFORMATION
  Report Type: Report from Study
  Country: US (occurrence: US)
  Receive Date: 20190204
  Receipt Date: 20190204
  Transmission Date: 20190417
  Serious: Yes (Death, Hospitalization, Other)
  Sender: FDA-Public Use
  Company Number: PHHO2015US020804

PATIENT
  Age: 89 Year
  Sex: Female
  Weight: 48.73 kg

DRUGS (7)
  1. TYLENOL [Concomitant]
     Active Substance: ACETAMINOPHEN
     Indication: PAIN
     Dosage: 650 MG, PRN
     Route: 048
  2. INC424A [Suspect]
     Active Substance: RUXOLITINIB
     Indication: MYELOPROLIFERATIVE NEOPLASM
     Dosage: 50 MG, BID
     Route: 048
     Dates: start: 20150818, end: 20151130
  3. DECITABINE. [Suspect]
     Active Substance: DECITABINE
     Indication: MYELOPROLIFERATIVE NEOPLASM
     Dosage: 30 MG, QD
     Route: 042
     Dates: start: 20150824
  4. LISINOPRIL. [Concomitant]
     Active Substance: LISINOPRIL
     Indication: PRODUCT USED FOR UNKNOWN INDICATION
     Dosage: 10 MG, QD
     Route: 048
  5. APPLE CIDER VINEGAR PLUS CHROMIUM [Concomitant]
     Indication: PRODUCT USED FOR UNKNOWN INDICATION
     Dosage: 500 MG, QD
     Route: 048
  6. CALCIUM CARBONATE AND VITAMIN D [Concomitant]
     Active Substance: CALCIUM CARBONATE\VITAMIN D
     Indication: PRODUCT USED FOR UNKNOWN INDICATION
     Dosage: 400 IU, QD
     Route: 065
  7. TRAMADOL. [Concomitant]
     Active Substance: TRAMADOL
     Indication: PAIN
     Dosage: 50 MG, Q6H
     Route: 048

REACTIONS (6)
  - Myelofibrosis [Fatal]
  - Pneumonia [Unknown]
  - Sepsis [Fatal]
  - Respiratory failure [Unknown]
  - Acute myocardial infarction [Fatal]
  - Febrile neutropenia [Unknown]

NARRATIVE: CASE EVENT DATE: 20151127
